FAERS Safety Report 24788117 (Version 3)
Quarter: 2025Q1

REPORT INFORMATION
  Report Type: Report from Study
  Country: ZA (occurrence: ZA)
  Receive Date: 20241230
  Receipt Date: 20250120
  Transmission Date: 20250409
  Serious: Yes (Congenital Anomaly, Other)
  Sender: HETERO
  Company Number: ZA-HETERO-HET2024ZA04960

PATIENT
  Sex: Female
  Weight: 2.32 kg

DRUGS (1)
  1. DOLUTEGRAVIR\LAMIVUDINE\TENOFOVIR DISOPROXIL FUMARATE [Suspect]
     Active Substance: DOLUTEGRAVIR\LAMIVUDINE\TENOFOVIR DISOPROXIL FUMARATE
     Indication: HIV infection
     Route: 064
     Dates: start: 20140904

REACTIONS (2)
  - Congenital umbilical hernia [Unknown]
  - Foetal exposure during pregnancy [Unknown]
